FAERS Safety Report 6759221-5 (Version None)
Quarter: 2010Q2

REPORT INFORMATION
  Report Type: 
  Country: None (occurrence: None)
  Receive Date: 20100607
  Receipt Date: 20100526
  Transmission Date: 20101027
  Serious: Yes (Other)
  Sender: FDA-Public Use
  Company Number: CN-PFIZER INC-2010067585

PATIENT
  Age: 71 Year
  Sex: Male

DRUGS (4)
  1. SULPERAZON [Suspect]
     Dosage: 3 G, 2X/DAY
     Route: 042
     Dates: start: 20100425, end: 20100428
  2. CLINDAMYCIN PHOSPHATE [Concomitant]
     Dosage: 0.3 G, 2X/DAY
     Route: 042
     Dates: start: 20100425, end: 20100501
  3. DEXAMETHASONE SODIUM PHOSPHATE [Concomitant]
     Dosage: 3 MG, 2X/DAY
     Route: 042
     Dates: start: 20100425, end: 20100501
  4. AMINOPHYLLINE [Concomitant]
     Dosage: 0.25 G, 2X/DAY
     Route: 042
     Dates: start: 20100425, end: 20100501

REACTIONS (1)
  - WHITE BLOOD CELL COUNT INCREASED [None]
